FAERS Safety Report 25861776 (Version 1)
Quarter: 2025Q3

REPORT INFORMATION
  Report Type: Spontaneous
  Country: US (occurrence: US)
  Receive Date: 20250930
  Receipt Date: 20250930
  Transmission Date: 20251021
  Serious: Yes (Life-Threatening, Hospitalization)
  Sender: TEVA
  Company Number: US-TEVA-VS-3375865

PATIENT
  Age: 33 Year
  Sex: Male

DRUGS (1)
  1. BACLOFEN [Suspect]
     Active Substance: BACLOFEN
     Indication: Muscle spasticity
     Route: 037

REACTIONS (6)
  - Mental impairment [Recovering/Resolving]
  - Stupor [Recovering/Resolving]
  - Drug withdrawal syndrome [Recovering/Resolving]
  - Musculoskeletal stiffness [Recovering/Resolving]
  - Cardiac arrest [Recovering/Resolving]
  - Eye movement disorder [Recovering/Resolving]
